FAERS Safety Report 13865664 (Version 1)
Quarter: 2017Q3

REPORT INFORMATION
  Report Type: Report from Study
  Country: IT (occurrence: IT)
  Receive Date: 20170814
  Receipt Date: 20170814
  Transmission Date: 20171127
  Serious: Yes (Life-Threatening, Hospitalization)
  Sender: FDA-Public Use
  Company Number: PHHO2011IT03374

PATIENT
  Age: 84 Year
  Sex: Male
  Weight: 90 kg

DRUGS (4)
  1. AMIODARONE [Suspect]
     Active Substance: AMIODARONE
     Indication: VENTRICULAR ARRHYTHMIA
     Dosage: 400 MG, TID
     Route: 065
     Dates: start: 20110218, end: 20110220
  2. LANOXIN [Suspect]
     Active Substance: DIGOXIN
     Indication: CARDIAC FAILURE
     Dosage: 0.185 MG, UNK
     Route: 065
     Dates: start: 20110307, end: 20110630
  3. ALISKIREN [Suspect]
     Active Substance: ALISKIREN
     Indication: CARDIAC FAILURE ACUTE
     Route: 048
     Dates: start: 20110217, end: 20111209
  4. CARVEDILOL. [Suspect]
     Active Substance: CARVEDILOL
     Indication: CARDIAC FAILURE ACUTE
     Dosage: 12.5 MG, BID
     Route: 048
     Dates: start: 20100608, end: 20110630

REACTIONS (7)
  - Pneumonia [Recovered/Resolved]
  - Cardiac failure [Recovered/Resolved]
  - Hypotension [Recovered/Resolved]
  - Concomitant disease progression [Recovered/Resolved]
  - Bradycardia [Recovered/Resolved]
  - Acute pulmonary oedema [Recovered/Resolved]
  - Renal failure [Recovering/Resolving]

NARRATIVE: CASE EVENT DATE: 20110220
